FAERS Safety Report 11582562 (Version 1)
Quarter: 2015Q4

REPORT INFORMATION
  Report Type: Spontaneous
  Country: US (occurrence: US)
  Receive Date: 20151001
  Receipt Date: 20151001
  Transmission Date: 20160304
  Serious: Yes (Hospitalization)
  Sender: FDA-Public Use
  Company Number: US-ROCHE-672871

PATIENT
  Age: 46 Year
  Sex: Male
  Weight: 95.3 kg

DRUGS (6)
  1. XANAX [Suspect]
     Active Substance: ALPRAZOLAM
     Indication: ANXIETY
     Route: 065
  2. PEGASYS [Suspect]
     Active Substance: PEGINTERFERON ALFA-2A
     Indication: HEPATITIS C
     Dosage: START DATE: LATE 2007, FORM: PFS;SECOND COURSE
     Route: 058
  3. PEGASYS [Suspect]
     Active Substance: PEGINTERFERON ALFA-2A
     Dosage: B1159B01;EXP DT:17 FEB 2011;IN WEEK 36
     Route: 058
  4. RIBAVIRIN. [Suspect]
     Active Substance: RIBAVIRIN
     Dosage: DIVIDED DOSES;SWITCHED TO COPEGUS IN WEEK 28
     Route: 048
     Dates: start: 20090813, end: 20100219
  5. RIBAVIRIN. [Suspect]
     Active Substance: RIBAVIRIN
     Indication: HEPATITIS C
     Dosage: DIVIDED DOSES
     Route: 048
  6. COPEGUS [Suspect]
     Active Substance: RIBAVIRIN
     Indication: HEPATITIS C
     Dosage: COURSE 3; SWITCHED FROM RIBAVIRIN TO COPEGUS IN WK28
     Route: 048

REACTIONS (11)
  - Musculoskeletal pain [Unknown]
  - Haematocrit decreased [Unknown]
  - Insomnia [Not Recovered/Not Resolved]
  - Weight decreased [Unknown]
  - Vision blurred [Not Recovered/Not Resolved]
  - Hepatitis C [Unknown]
  - Drug abuse [Unknown]
  - Full blood count decreased [Not Recovered/Not Resolved]
  - White blood cell count decreased [Unknown]
  - Platelet count decreased [Unknown]
  - Anxiety [Not Recovered/Not Resolved]

NARRATIVE: CASE EVENT DATE: 20090813
